FAERS Safety Report 17502930 (Version 1)
Quarter: 2020Q1

REPORT INFORMATION
  Report Type: Spontaneous
  Country: DE (occurrence: DE)
  Receive Date: 20200305
  Receipt Date: 20200305
  Transmission Date: 20200409
  Serious: Yes (Other)
  Sender: FDA-Public Use
  Company Number: DE-US-PROVELL PHARMACEUTICALS LLC-9146825

PATIENT
  Sex: Female
  Weight: 76 kg

DRUGS (2)
  1. CANDESARTAN. [Concomitant]
     Active Substance: CANDESARTAN
     Indication: HYPERTENSION
     Dosage: 8 (UNITS UNSPECIFIED)
  2. EUTHYROX [Suspect]
     Active Substance: LEVOTHYROXINE SODIUM
     Indication: AUTOIMMUNE THYROIDITIS
     Dates: end: 201911

REACTIONS (6)
  - Angioedema [Recovering/Resolving]
  - Seizure [Recovering/Resolving]
  - Dyspnoea [Recovering/Resolving]
  - Urticaria [Recovered/Resolved]
  - Aphonia [Recovering/Resolving]
  - Blood pressure decreased [Recovering/Resolving]
